FAERS Safety Report 4920582-0 (Version None)
Quarter: 2006Q1

REPORT INFORMATION
  Report Type: 
  Country: None (occurrence: None)
  Receive Date: 20060113
  Receipt Date: 20051013
  Transmission Date: 20060701
  Serious: No
  Sender: FDA-Public Use
  Company Number: 2005SP003490

PATIENT
  Age: 81 Year
  Sex: Female
  Weight: 68.0396 kg

DRUGS (6)
  1. LUNESTA [Suspect]
     Indication: INSOMNIA
     Dosage: 2 MG;HS;ORAL
     Route: 048
     Dates: start: 20051011, end: 20051013
  2. WARFARIN [Concomitant]
  3. DIGOXIN [Concomitant]
  4. HYDROCHLOROTHIAZIDE [Concomitant]
  5. ATENOLOL [Concomitant]
  6. MULTIVITAMIN [Concomitant]

REACTIONS (1)
  - PARADOXICAL DRUG REACTION [None]
